FAERS Safety Report 6892644-2 (Version None)
Quarter: 2010Q3

REPORT INFORMATION
  Report Type: 
  Country: None (occurrence: None)
  Receive Date: 20100731
  Receipt Date: 20080808
  Transmission Date: 20110219
  Serious: Yes (Other)
  Sender: FDA-Public Use
  Company Number: US-PFIZER INC-2005151284

PATIENT
  Sex: Male

DRUGS (11)
  1. NEURONTIN [Suspect]
     Indication: DEPRESSION
     Dates: start: 19991013
  2. NEURONTIN [Suspect]
     Indication: ANXIETY
  3. NEURONTIN [Suspect]
     Indication: BIPOLAR DISORDER
  4. EFFEXOR [Concomitant]
     Dates: start: 19980101, end: 19990101
  5. TRAZODONE [Concomitant]
     Dates: start: 19980101, end: 19990101
  6. ZOLOFT [Concomitant]
     Dates: start: 19990101
  7. KLONOPIN [Concomitant]
     Dates: start: 19970101, end: 20000101
  8. REMERON [Concomitant]
     Dates: start: 20000101, end: 20000101
  9. PAXIL [Concomitant]
     Indication: DEPRESSION
     Dates: start: 19991021, end: 20000101
  10. PAXIL [Concomitant]
     Indication: SOCIAL PHOBIA
  11. WELLBUTRIN [Concomitant]
     Dates: start: 20030101, end: 20030101

REACTIONS (2)
  - DRUG INEFFECTIVE [None]
  - SUICIDE ATTEMPT [None]
